FAERS Safety Report 4385392-4 (Version None)
Quarter: 2004Q2

REPORT INFORMATION
  Report Type: 
  Country: None (occurrence: None)
  Receive Date: 20040622
  Receipt Date: 20040610
  Transmission Date: 20050107
  Serious: Yes (Hospitalization)
  Sender: FDA-Public Use
  Company Number: 04P-163-0263591-00

PATIENT
  Age: 55 Year
  Sex: Male
  Weight: 78.9259 kg

DRUGS (7)
  1. HUMIRA [Suspect]
     Indication: RHEUMATOID ARTHRITIS
     Dosage: 40 MG , 1 IN 2 WK, SUBCUTANEOUS
     Route: 058
     Dates: start: 20040305
  2. METHOTREXATE SODIUM [Concomitant]
  3. FOLIC ACID [Concomitant]
  4. ROFECOXIB [Concomitant]
  5. VASERETIC [Concomitant]
  6. ATORVASTATIN CALCIUM [Concomitant]
  7. VICODIN [Concomitant]

REACTIONS (1)
  - DIVERTICULITIS [None]
